FAERS Safety Report 21192639 (Version 1)
Quarter: 2022Q3

REPORT INFORMATION
  Report Type: Spontaneous
  Country: JP (occurrence: JP)
  Receive Date: 20220810
  Receipt Date: 20220810
  Transmission Date: 20221027
  Serious: Yes (Other)
  Sender: FDA-Public Use
  Company Number: JP-AUROBINDO-AUR-APL-2022-032005

PATIENT
  Age: 74 Year
  Sex: Female

DRUGS (1)
  1. PRALATREXATE [Suspect]
     Active Substance: PRALATREXATE
     Indication: Angioimmunoblastic T-cell lymphoma recurrent
     Dosage: 20 MILLIGRAM
     Route: 042

REACTIONS (3)
  - Pancytopenia [Unknown]
  - Malignant neoplasm progression [Unknown]
  - B-cell lymphoma [Unknown]
